FAERS Safety Report 23087263 (Version 2)
Quarter: 2023Q4

REPORT INFORMATION
  Report Type: Spontaneous
  Country: US (occurrence: US)
  Receive Date: 20231020
  Receipt Date: 20231104
  Transmission Date: 20240110
  Serious: No
  Sender: FDA-Public Use
  Company Number: US-GLENMARK PHARMACEUTICALS-2023GMK083879

PATIENT

DRUGS (3)
  1. ESTRADIOL [Suspect]
     Active Substance: ESTRADIOL
     Indication: Menopausal symptoms
     Dosage: UNK, TWICE A WEEK
     Route: 067
     Dates: start: 202304
  2. BUPROPION [Concomitant]
     Active Substance: BUPROPION
     Indication: Fatigue
     Dosage: UNK
     Route: 048
     Dates: start: 2021
  3. NP THYROID [Concomitant]
     Active Substance: LEVOTHYROXINE\LIOTHYRONINE
     Indication: Hypothyroidism
     Dosage: UNK
     Route: 048
     Dates: start: 2002

REACTIONS (6)
  - Inappropriate schedule of product administration [Unknown]
  - Product use in unapproved indication [Unknown]
  - Menopausal symptoms [Not Recovered/Not Resolved]
  - Drug dose omission by device [Unknown]
  - Product packaging quantity issue [Unknown]
  - Device physical property issue [Unknown]

NARRATIVE: CASE EVENT DATE: 20230101
